FAERS Safety Report 15496906 (Version 2)
Quarter: 2018Q4

REPORT INFORMATION
  Report Type: Spontaneous
  Country: US (occurrence: US)
  Receive Date: 20181015
  Receipt Date: 20181213
  Transmission Date: 20190205
  Serious: Yes (Hospitalization)
  Sender: FDA-Public Use
  Company Number: US-BRISTOL-MYERS SQUIBB COMPANY-BMS-2018-093257

PATIENT
  Sex: Male
  Weight: 80.7 kg

DRUGS (1)
  1. OPDIVO [Suspect]
     Active Substance: NIVOLUMAB
     Indication: RENAL CELL CARCINOMA
     Dosage: UNAVAILABLE
     Route: 065

REACTIONS (8)
  - Pyrexia [Unknown]
  - Tremor [Unknown]
  - Disorientation [Unknown]
  - Movement disorder [Unknown]
  - Hypertension [Unknown]
  - General physical health deterioration [Unknown]
  - Headache [Unknown]
  - Eye disorder [Unknown]
